FAERS Safety Report 8500525-3 (Version None)
Quarter: 2012Q3

REPORT INFORMATION
  Report Type: 
  Country: None (occurrence: None)
  Receive Date: 20120710
  Receipt Date: 20120702
  Transmission Date: 20120928
  Serious: Yes (Death, Hospitalization, Other)
  Sender: FDA-Public Use
  Company Number: JP-ROCHE-1037172

PATIENT
  Age: 70 Year
  Sex: Female

DRUGS (7)
  1. PREDNISOLONE [Concomitant]
     Indication: RHEUMATOID ARTHRITIS
     Route: 048
  2. SELBEX [Concomitant]
     Indication: PROPHYLAXIS
     Route: 048
  3. ACTEMRA [Suspect]
     Route: 041
     Dates: start: 20081016, end: 20100225
  4. ACTEMRA [Suspect]
     Indication: RHEUMATOID ARTHRITIS
     Dosage: 400???410MG
     Route: 041
     Dates: start: 20080918, end: 20080918
  5. ALFAROL [Concomitant]
     Indication: OSTEOPOROSIS
     Route: 048
  6. ACTONEL [Concomitant]
     Indication: OSTEOPOROSIS
     Route: 048
  7. LOXONIN [Concomitant]
     Indication: RHEUMATOID ARTHRITIS
     Route: 048

REACTIONS (4)
  - CALCULUS URINARY [None]
  - GASTRIC CANCER STAGE IV [None]
  - HAEMATURIA [None]
  - HYDRONEPHROSIS [None]
